FAERS Safety Report 12832352 (Version 1)
Quarter: 2016Q4

REPORT INFORMATION
  Report Type: Spontaneous
  Country: US (occurrence: US)
  Receive Date: 20161010
  Receipt Date: 20161010
  Transmission Date: 20170207
  Serious: No
  Sender: FDA-Public Use
  Company Number: US-JAZZ-2016-US-013036

PATIENT
  Age: 68 Year
  Sex: Female

DRUGS (68)
  1. XYREM [Suspect]
     Active Substance: SODIUM OXYBATE
     Dosage: DOSE ADJUSTMENTS
     Route: 048
     Dates: start: 201107, end: 201606
  2. ALREX [Concomitant]
     Active Substance: LOTEPREDNOL ETABONATE
  3. AMMONIUM LACTATE. [Concomitant]
     Active Substance: AMMONIUM LACTATE
  4. MACROBID [Concomitant]
     Active Substance: NITROFURANTOIN\NITROFURANTOIN MONOHYDRATE
  5. PROTONIX [Concomitant]
     Active Substance: PANTOPRAZOLE SODIUM
  6. TRAMADOL HCL [Concomitant]
     Active Substance: TRAMADOL HYDROCHLORIDE
  7. VENLAFAXINE HCL [Concomitant]
     Active Substance: VENLAFAXINE HYDROCHLORIDE
  8. CALCIUM +D [Concomitant]
     Active Substance: CALCIUM\VITAMIN D
  9. CLONAZEPAM. [Concomitant]
     Active Substance: CLONAZEPAM
  10. TEA [Concomitant]
     Active Substance: TEA LEAF
  11. PREDNISONE. [Concomitant]
     Active Substance: PREDNISONE
  12. XYREM [Suspect]
     Active Substance: SODIUM OXYBATE
     Indication: NARCOLEPSY
     Dosage: 2.25 G, BID
     Route: 048
     Dates: start: 201107, end: 201107
  13. ASPIRIN. [Concomitant]
     Active Substance: ASPIRIN
  14. HORIZANT [Concomitant]
     Active Substance: GABAPENTIN ENACARBIL
  15. TRAVATAN Z [Concomitant]
     Active Substance: TRAVOPROST
  16. ZITHROMAX [Concomitant]
     Active Substance: AZITHROMYCIN DIHYDRATE
  17. NEXIUM [Concomitant]
     Active Substance: ESOMEPRAZOLE MAGNESIUM
  18. XOPENEX HFA [Concomitant]
     Active Substance: LEVALBUTEROL TARTRATE
  19. ZALEPLON. [Concomitant]
     Active Substance: ZALEPLON
  20. CODEINE W/GUAIFENESIN [Concomitant]
     Active Substance: CODEINE\GUAIFENESIN
  21. XYREM [Suspect]
     Active Substance: SODIUM OXYBATE
     Dosage: 2.5 G, BID
     Route: 048
     Dates: start: 201606
  22. ESTRING [Concomitant]
     Active Substance: ESTRADIOL
  23. PERCOCET [Concomitant]
     Active Substance: ACETAMINOPHEN\OXYCODONE HYDROCHLORIDE
  24. FOLIC ACID. [Concomitant]
     Active Substance: FOLIC ACID
  25. NUVIGIL [Concomitant]
     Active Substance: ARMODAFINIL
  26. PATADAY [Concomitant]
     Active Substance: OLOPATADINE HYDROCHLORIDE
  27. TYLENOL ARTHRITIS PAIN [Concomitant]
     Active Substance: ACETAMINOPHEN
  28. FLEXERIL [Concomitant]
     Active Substance: CYCLOBENZAPRINE HYDROCHLORIDE
  29. VITAMIN D [Concomitant]
     Active Substance: CHOLECALCIFEROL
  30. PROBIOTIC [Concomitant]
     Active Substance: PROBIOTICS NOS
  31. COENZYME Q10 [Concomitant]
     Active Substance: UBIDECARENONE
  32. CINNAMON. [Concomitant]
     Active Substance: CINNAMON
  33. MAGNESIUM OXIDE. [Concomitant]
     Active Substance: MAGNESIUM OXIDE
  34. SELENIUM [Concomitant]
     Active Substance: SELENIUM
  35. CLARITIN [Concomitant]
     Active Substance: LORATADINE
  36. ZOLOFT [Concomitant]
     Active Substance: SERTRALINE HYDROCHLORIDE
  37. CLOTRIMAZOLE. [Concomitant]
     Active Substance: CLOTRIMAZOLE
  38. HUMIRA [Concomitant]
     Active Substance: ADALIMUMAB
  39. DULERA [Concomitant]
     Active Substance: FORMOTEROL FUMARATE DIHYDRATE\MOMETASONE FUROATE
  40. ALEVE [Concomitant]
     Active Substance: NAPROXEN SODIUM
  41. DIFLUCAN [Concomitant]
     Active Substance: FLUCONAZOLE
  42. VITAMIN C [Concomitant]
     Active Substance: ASCORBIC ACID
  43. ZANTAC [Concomitant]
     Active Substance: RANITIDINE HYDROCHLORIDE
  44. ACETYL-L-CARNITINE HCL [Concomitant]
  45. ALPHA LIPOIC ACID [Concomitant]
     Active Substance: .ALPHA.-LIPOIC ACID
  46. OASIS TEARS [Concomitant]
     Active Substance: GLYCERIN
  47. PRESERVISION AREDS [Concomitant]
     Active Substance: MINERALS\VITAMINS
  48. ALPRAZOLAM. [Concomitant]
     Active Substance: ALPRAZOLAM
  49. GABAPENTIN. [Concomitant]
     Active Substance: GABAPENTIN
  50. METHOTREXATE. [Concomitant]
     Active Substance: METHOTREXATE
  51. OMEGA 3 FISH OIL [Concomitant]
     Active Substance: FISH OIL\OMEGA-3 FATTY ACIDS
  52. REQUIP [Concomitant]
     Active Substance: ROPINIROLE HYDROCHLORIDE
  53. PRAVASTATIN SODIUM. [Concomitant]
     Active Substance: PRAVASTATIN SODIUM
  54. POTASSIUM GLUCONATE [Concomitant]
     Active Substance: POTASSIUM GLUCONATE
  55. TOLTERODINE TARTRATE. [Concomitant]
     Active Substance: TOLTERODINE TARTRATE
  56. ZYRTEC [Concomitant]
     Active Substance: CETIRIZINE HYDROCHLORIDE
  57. MULTIVITAMINS [Concomitant]
     Active Substance: VITAMINS
  58. RESTASIS [Concomitant]
     Active Substance: CYCLOSPORINE
  59. TACROLIMUS. [Concomitant]
     Active Substance: TACROLIMUS
  60. CIPRO [Concomitant]
     Active Substance: CIPROFLOXACIN HYDROCHLORIDE
  61. FAMCICLOVIR. [Concomitant]
     Active Substance: FAMCICLOVIR
  62. CRANBERRY CONCENTRATE [Concomitant]
     Active Substance: CRANBERRY CONCENTRATE
  63. PERCOCET [Concomitant]
     Active Substance: ACETAMINOPHEN\OXYCODONE HYDROCHLORIDE
  64. NYSTATIN. [Concomitant]
     Active Substance: NYSTATIN
  65. OXYCODONE HYDROCHLORIDE. [Concomitant]
     Active Substance: OXYCODONE HYDROCHLORIDE
  66. ADVAIR HFA [Concomitant]
     Active Substance: FLUTICASONE PROPIONATE\SALMETEROL XINAFOATE
  67. FLORADIX [Concomitant]
     Active Substance: IRON
  68. NASACORT ALLERGY 24HR [Concomitant]
     Active Substance: TRIAMCINOLONE ACETONIDE

REACTIONS (1)
  - Fluid intake reduced [Not Recovered/Not Resolved]

NARRATIVE: CASE EVENT DATE: 20160712
